FAERS Safety Report 4390880-0 (Version None)
Quarter: 2004Q3

REPORT INFORMATION
  Report Type: 
  Country: None (occurrence: None)
  Receive Date: 20040702
  Receipt Date: 20040702
  Transmission Date: 20050211
  Serious: Yes (Hospitalization, Disabling)
  Sender: FDA-Public Use
  Company Number: None

PATIENT
  Age: 35 Year
  Sex: Male
  Weight: 88.4514 kg

DRUGS (6)
  1. GAMMAGARD S/D [Suspect]
     Indication: CHRONIC INFLAMMATORY DEMYELINATING POLYRADICULONEUROPATHY
     Dosage: 0.5 GM/KG IV Q 4 WKS [WITH US ~2/04 TO 4/10 PRIOR IVIG HISTORY ~/= 6 GM]
     Route: 042
  2. GAMMAGARD S/D [Suspect]
  3. MEDROL [Concomitant]
  4. ASPIRIN [Concomitant]
  5. HYZAAR [Concomitant]
  6. NAPROXEN [Concomitant]

REACTIONS (2)
  - LEG AMPUTATION [None]
  - VENOUS THROMBOSIS LIMB [None]
